FAERS Safety Report 4955108-9 (Version None)
Quarter: 2006Q1

REPORT INFORMATION
  Report Type: 
  Country: None (occurrence: None)
  Receive Date: 20060322
  Receipt Date: 20060314
  Transmission Date: 20060701
  Serious: Yes (Death, Other)
  Sender: FDA-Public Use
  Company Number: US200603000995

PATIENT
  Age: 46 Year
  Weight: 99.8 kg

DRUGS (1)
  1. ZYPREXA [Suspect]
     Indication: SCHIZOPHRENIA
     Dates: start: 20040830

REACTIONS (4)
  - BODY MASS INDEX INCREASED [None]
  - DIABETES MELLITUS [None]
  - PANCREATITIS [None]
  - WEIGHT INCREASED [None]
